FAERS Safety Report 7061085-X (Version None)
Quarter: 2010Q4

REPORT INFORMATION
  Report Type: 
  Country: None (occurrence: None)
  Receive Date: 20101026
  Receipt Date: 20101020
  Transmission Date: 20110411
  Serious: Yes (Disabling, Other)
  Sender: FDA-Public Use
  Company Number: US-PFIZER INC-2010102173

PATIENT
  Sex: Female
  Weight: 64 kg

DRUGS (2)
  1. LIPITOR [Suspect]
     Indication: BLOOD CHOLESTEROL INCREASED
     Dosage: UNK
     Route: 048
     Dates: start: 20000101, end: 20050101
  2. BENICAR [Concomitant]
     Indication: BLOOD PRESSURE ABNORMAL
     Dosage: UNK

REACTIONS (8)
  - ABASIA [None]
  - BACK PAIN [None]
  - DYSPNOEA EXERTIONAL [None]
  - EYELID MARGIN CRUSTING [None]
  - FALL [None]
  - FEELING ABNORMAL [None]
  - MUSCULAR WEAKNESS [None]
  - TOOTH FRACTURE [None]
